FAERS Safety Report 19064323 (Version 3)
Quarter: 2021Q2

REPORT INFORMATION
  Report Type: Report from Study
  Country: PH (occurrence: PH)
  Receive Date: 20210326
  Receipt Date: 20210519
  Transmission Date: 20210717
  Serious: Yes (Death, Hospitalization, Other)
  Sender: FDA-Public Use
  Company Number: PH-SEATTLE GENETICS-2021SGN01694

PATIENT
  Sex: Female

DRUGS (1)
  1. BRENTUXIMAB VEDOTIN [Suspect]
     Active Substance: BRENTUXIMAB VEDOTIN
     Indication: HODGKIN^S DISEASE REFRACTORY
     Dosage: 100 MILLIGRAM
     Route: 042
     Dates: start: 20200822

REACTIONS (12)
  - Death [Fatal]
  - Asthenia [Unknown]
  - Peripheral swelling [Unknown]
  - Malaise [Unknown]
  - Abdominal pain upper [Unknown]
  - Drug ineffective [Unknown]
  - Metastasis [Unknown]
  - Ascites [Unknown]
  - Abdominal distension [Unknown]
  - Mouth ulceration [Unknown]
  - Pulmonary oedema [Unknown]
  - Platelet disorder [Unknown]
